FAERS Safety Report 8884925 (Version 1)
Quarter: 2012Q4

REPORT INFORMATION
  Report Type: 
  Country: US (occurrence: US)
  Receive Date: 20121102
  Receipt Date: 20121102
  Transmission Date: 20130627
  Serious: Yes (Other)
  Sender: FDA-Public Use
  Company Number: US-PFIZER INC-2012273379

PATIENT
  Age: 79 Year
  Sex: Male
  Weight: 72.56 kg

DRUGS (3)
  1. FLECTOR [Suspect]
     Indication: TENDONITIS
     Dosage: UNK, every twelve hours
     Dates: start: 20121025, end: 20121031
  2. LIPITOR [Concomitant]
     Indication: HIGH CHOLESTEROL
     Dosage: 40 mg, daily
  3. HYZAAR [Concomitant]
     Indication: BLOOD PRESSURE HIGH
     Dosage: 100/12.5 daily

REACTIONS (1)
  - Diarrhoea haemorrhagic [Recovering/Resolving]
